FAERS Safety Report 8866255 (Version 3)
Quarter: 2013Q1

REPORT INFORMATION
  Report Type: Spontaneous
  Country: SE (occurrence: SE)
  Receive Date: 20121025
  Receipt Date: 20130213
  Transmission Date: 20140127
  Serious: Yes (Other)
  Sender: FDA-Public Use
  Company Number: SE-ROCHE-1149134

PATIENT
  Sex: Male

DRUGS (2)
  1. LUCENTIS [Suspect]
     Indication: DIABETIC RETINAL OEDEMA
     Route: 050
     Dates: start: 201104
  2. INSULIN [Concomitant]
     Route: 065

REACTIONS (1)
  - Cerebrovascular accident [Recovered/Resolved with Sequelae]
